FAERS Safety Report 11349344 (Version 1)
Quarter: 2015Q3

REPORT INFORMATION
  Report Type: Spontaneous
  Country: CH (occurrence: None)
  Receive Date: 20150805
  Receipt Date: 20150805
  Transmission Date: 20151125
  Serious: Yes (Hospitalization)
  Sender: FDA-Public Use
  Company Number: CO-ZF-CH-2015-009

PATIENT
  Age: 65 Year
  Sex: Female
  Weight: 54.02 kg

DRUGS (6)
  1. IBUPROFEN. [Suspect]
     Active Substance: IBUPROFEN
     Indication: POSTOPERATIVE ANALGESIA
     Route: 048
     Dates: start: 20150602, end: 20150608
  2. METAMIZOLE SODIUM [Suspect]
     Active Substance: METAMIZOLE SODIUM
     Indication: POSTOPERATIVE ANALGESIA
     Dates: start: 20150602, end: 20150607
  3. ZINACEF [Suspect]
     Active Substance: CEFUROXIME SODIUM
     Indication: PATELLA FRACTURE
     Route: 042
     Dates: start: 20150602, end: 20150602
  4. ENOXAPARIN SODIUM. [Suspect]
     Active Substance: ENOXAPARIN SODIUM
     Indication: THROMBOSIS PROPHYLAXIS
     Route: 058
     Dates: start: 20150602, end: 20150607
  5. SIMVASTATIN. [Concomitant]
     Active Substance: SIMVASTATIN
  6. (FILM-COATED TABLET) (HYDROCHLOROTHIAZIDE, BISOPROLOL FUMARATE) [Concomitant]

REACTIONS (2)
  - Drug hypersensitivity [None]
  - Acute generalised exanthematous pustulosis [None]

NARRATIVE: CASE EVENT DATE: 20150605
